FAERS Safety Report 6648125-4 (Version None)
Quarter: 2010Q1

REPORT INFORMATION
  Report Type: 
  Country: None (occurrence: None)
  Receive Date: 20100319
  Receipt Date: 20100307
  Transmission Date: 20100710
  Serious: Yes (Hospitalization)
  Sender: FDA-Public Use
  Company Number: 232408J10USA

PATIENT
  Age: 38 Year
  Sex: Female

DRUGS (7)
  1. REBIF [Suspect]
     Indication: MULTIPLE SCLEROSIS
     Dosage: 44 MCG, 3 IN 1 WEEKS, SUBCUTANEOUS; 44 MCG, 3 IN 1 WEEKS, SUBCUTANEOUS
     Route: 058
     Dates: start: 20090817, end: 20090101
  2. REBIF [Suspect]
     Indication: MULTIPLE SCLEROSIS
     Dosage: 44 MCG, 3 IN 1 WEEKS, SUBCUTANEOUS; 44 MCG, 3 IN 1 WEEKS, SUBCUTANEOUS
     Route: 058
     Dates: start: 20100306
  3. KLONOPIN [Concomitant]
  4. PERCOCET [Concomitant]
  5. ZOLOFT [Concomitant]
  6. VALIUM (DIZEPAM) [Concomitant]
  7. ZOLPIDEM [Concomitant]

REACTIONS (8)
  - ABASIA [None]
  - ABDOMINAL DISTENSION [None]
  - APPENDICITIS [None]
  - DEPRESSED MOOD [None]
  - HYPOAESTHESIA [None]
  - PAIN [None]
  - PYREXIA [None]
  - TINNITUS [None]
